FAERS Safety Report 5416720-6 (Version None)
Quarter: 2007Q3

REPORT INFORMATION
  Report Type: 
  Country: None (occurrence: None)
  Receive Date: 20070816
  Receipt Date: 20070813
  Transmission Date: 20080115
  Serious: Yes (Death)
  Sender: FDA-Public Use
  Company Number: A0669795A

PATIENT
  Age: 86 Year
  Sex: Male

DRUGS (7)
  1. COREG CR [Suspect]
     Dosage: 10MG PER DAY
     Route: 048
  2. ADVAIR DISKUS 100/50 [Concomitant]
     Route: 055
  3. ASPIRIN [Concomitant]
  4. SYNTHROID [Concomitant]
  5. SPIRIVA [Concomitant]
  6. POTASSIUM CHLORIDE [Concomitant]
  7. LASIX [Concomitant]

REACTIONS (1)
  - DEATH [None]
